FAERS Safety Report 5518584-9 (Version None)
Quarter: 2007Q4

REPORT INFORMATION
  Report Type: 
  Country: None (occurrence: None)
  Receive Date: 20071113
  Receipt Date: 20071029
  Transmission Date: 20080405
  Serious: Yes (Hospitalization)
  Sender: FDA-Public Use
  Company Number: 013263

PATIENT
  Age: 50 Year
  Sex: Male

DRUGS (4)
  1. PRIALT [Suspect]
     Indication: BACK PAIN
     Dosage: INTRATHECAL
     Route: 037
     Dates: start: 20070830, end: 20071022
  2. ACETYLSALICYLIC ACID SRT [Concomitant]
  3. PASPERTIN [Concomitant]
  4. LORAZEPAM [Concomitant]

REACTIONS (3)
  - HEADACHE [None]
  - HYPERAESTHESIA [None]
  - PAIN [None]
